FAERS Safety Report 15014891 (Version 1)
Quarter: 2018Q2

REPORT INFORMATION
  Report Type: Spontaneous
  Country: US (occurrence: US)
  Receive Date: 20180530
  Receipt Date: 20180530
  Transmission Date: 20180711
  Serious: Yes (Other)
  Sender: FDA-Public Use
  Company Number: None

PATIENT
  Age: 82 Year
  Sex: Male
  Weight: 68.4 kg

DRUGS (10)
  1. WARFARIN [Concomitant]
     Active Substance: WARFARIN
  2. VITAMIN D [Concomitant]
     Active Substance: CHOLECALCIFEROL
  3. TAZTIA XT [Concomitant]
     Active Substance: DILTIAZEM HYDROCHLORIDE
  4. FUROSEMIDE. [Concomitant]
     Active Substance: FUROSEMIDE
  5. PRILOSEC OTC [Concomitant]
     Active Substance: OMEPRAZOLE MAGNESIUM
  6. PROBIOTIC [Concomitant]
     Active Substance: PROBIOTICS NOS
  7. AMIODARONE [Suspect]
     Active Substance: AMIODARONE
     Route: 048
  8. LEVOTHYROXINE. [Concomitant]
     Active Substance: LEVOTHYROXINE
  9. FOSAMAX [Concomitant]
     Active Substance: ALENDRONATE SODIUM
  10. VITAMIN C [Concomitant]
     Active Substance: ASCORBIC ACID

REACTIONS (7)
  - Pulmonary toxicity [None]
  - Heart rate irregular [None]
  - Dyspnoea [None]
  - Shock [None]
  - Cough [None]
  - Disturbance in attention [None]
  - Pulmonary oedema [None]

NARRATIVE: CASE EVENT DATE: 20161123
